FAERS Safety Report 8941654 (Version 2)
Quarter: 2012Q4

REPORT INFORMATION
  Report Type: 
  Country: FR (occurrence: FR)
  Receive Date: 20121203
  Receipt Date: 20121217
  Transmission Date: 20130627
  Serious: Yes (Other)
  Sender: FDA-Public Use
  Company Number: PHHY2012FR110084

PATIENT
  Age: 59 Year
  Sex: Female
  Weight: 50 kg

DRUGS (2)
  1. ACLASTA [Suspect]
     Indication: OSTEOPOROSIS
     Dosage: UNK UKN, UNK
     Route: 042
     Dates: start: 20121125
  2. MOPRAL [Concomitant]
     Indication: GASTRIC CANCER
     Dosage: 20 mg, QD
     Route: 048
     Dates: start: 199606

REACTIONS (16)
  - Migraine [Recovering/Resolving]
  - Musculoskeletal chest pain [Recovered/Resolved]
  - Impaired work ability [Unknown]
  - Hot flush [Recovering/Resolving]
  - Cough [Recovering/Resolving]
  - Arthralgia [Recovering/Resolving]
  - Pain in extremity [Recovering/Resolving]
  - Dry mouth [Recovering/Resolving]
  - Abdominal pain [Recovering/Resolving]
  - Decreased appetite [Recovering/Resolving]
  - Neck pain [Unknown]
  - Insomnia [Recovering/Resolving]
  - Influenza [Recovering/Resolving]
  - Nausea [Recovering/Resolving]
  - Pyrexia [Recovered/Resolved]
  - Chills [Recovering/Resolving]
